FAERS Safety Report 4663293-1 (Version None)
Quarter: 2005Q2

REPORT INFORMATION
  Report Type: 
  Country: None (occurrence: None)
  Receive Date: 20050513
  Receipt Date: 20050502
  Transmission Date: 20051028
  Serious: Yes (Hospitalization)
  Sender: FDA-Public Use
  Company Number: 2005067968

PATIENT
  Age: 7 Year
  Sex: Male

DRUGS (10)
  1. HYDROCORTISONE SODIUM SUCCINATE [Suspect]
     Indication: ANAPHYLACTIC SHOCK
     Dosage: 100 MG (100 MG), INTRAVENOUS
     Route: 042
     Dates: start: 20031222, end: 20031122
  2. BETAMETHASONE SODIUM PHOSPHATE [Suspect]
     Indication: ANAPHYLACTIC SHOCK
     Dosage: 6 MG (0.5 MG), ORAL
     Route: 048
     Dates: start: 20031122, end: 20031122
  3. CLEMASTINE (CLEMASTINE) [Suspect]
     Indication: ANAPHYLACTIC SHOCK
     Dosage: 5 ML, ORAL
     Route: 048
     Dates: start: 20031122, end: 20031122
  4. EPINEPHRINE [Suspect]
     Indication: ANAPHYLACTIC SHOCK
     Dosage: 0.2 MG, SUBCUTANEOUS
     Route: 058
     Dates: start: 20031122, end: 20031122
  5. CALCIUM CARBONATE (CALCIUM CARBONATE) [Concomitant]
  6. SALBUTAMOL (SALBUTAMOL) [Concomitant]
  7. CETIRIZINE (CETIRIZINE) [Concomitant]
  8. SALMETEROL XINAFOATE (SALMETEROL XINAFOATE) [Concomitant]
  9. EPINEPHRINE [Concomitant]
  10. MOMETASONE FUROATE [Concomitant]

REACTIONS (8)
  - ABDOMINAL PAIN UPPER [None]
  - DYSPNOEA [None]
  - HYPERSENSITIVITY [None]
  - NAUSEA [None]
  - PRURITUS [None]
  - RASH MACULAR [None]
  - THROAT IRRITATION [None]
  - VOMITING [None]
